FAERS Safety Report 25578394 (Version 1)
Quarter: 2025Q3

REPORT INFORMATION
  Report Type: Report from Study
  Country: CA (occurrence: CA)
  Receive Date: 20250718
  Receipt Date: 20250718
  Transmission Date: 20251020
  Serious: Yes (Other)
  Sender: TAKEDA
  Company Number: CA-TAKEDA-2025TUS063911

PATIENT
  Sex: Male

DRUGS (7)
  1. VEDOLIZUMAB [Suspect]
     Active Substance: VEDOLIZUMAB
     Indication: Crohn^s disease
  2. PREDNISONE [Concomitant]
     Active Substance: PREDNISONE
  3. ROSUVASTATIN [Concomitant]
     Active Substance: ROSUVASTATIN
  4. QUETIAPINE [Concomitant]
     Active Substance: QUETIAPINE
  5. LAMOTRIGINE [Concomitant]
     Active Substance: LAMOTRIGINE
  6. FLUOXETINE [Concomitant]
     Active Substance: FLUOXETINE HYDROCHLORIDE
  7. PERINDOPRIL [Concomitant]
     Active Substance: PERINDOPRIL

REACTIONS (1)
  - Crohn^s disease [Unknown]
